FAERS Safety Report 7691609-0 (Version None)
Quarter: 2011Q3

REPORT INFORMATION
  Report Type: 
  Country: None (occurrence: None)
  Receive Date: 20110818
  Receipt Date: 20110818
  Transmission Date: 20111222
  Serious: Yes (Other)
  Sender: FDA-Public Use
  Company Number: US-BAYER-201041667NA

PATIENT
  Age: 33 Year
  Sex: Female

DRUGS (2)
  1. BETASERON [Concomitant]
  2. YAZ [Suspect]
     Indication: PRODUCT USED FOR UNKNOWN INDICATION
     Route: 048

REACTIONS (4)
  - HIGH RISK PREGNANCY [None]
  - CERVIX HAEMORRHAGE UTERINE [None]
  - PREGNANCY ON ORAL CONTRACEPTIVE [None]
  - AMENORRHOEA [None]
